FAERS Safety Report 24900770 (Version 1)
Quarter: 2025Q1

REPORT INFORMATION
  Report Type: Spontaneous
  Country: DK (occurrence: DK)
  Receive Date: 20250129
  Receipt Date: 20250129
  Transmission Date: 20250408
  Serious: Yes (Life-Threatening, Hospitalization, Other)
  Sender: ABBVIE
  Company Number: None

PATIENT
  Age: 52 Year
  Sex: Female

DRUGS (1)
  1. RINVOQ [Suspect]
     Active Substance: UPADACITINIB
     Indication: Psoriatic arthropathy
     Route: 048
     Dates: start: 20240111, end: 20241201

REACTIONS (6)
  - Herpes zoster meningoencephalitis [Not Recovered/Not Resolved]
  - Dysphagia [Recovered/Resolved]
  - Nervous system disorder [Not Recovered/Not Resolved]
  - Speech disorder [Recovered/Resolved]
  - Hypoacusis [Not Recovered/Not Resolved]
  - Herpes zoster oticus [Not Recovered/Not Resolved]

NARRATIVE: CASE EVENT DATE: 20241209
